APPROVED DRUG PRODUCT: PRELAY
Active Ingredient: TROGLITAZONE
Strength: 300MG
Dosage Form/Route: TABLET;ORAL
Application: N020719 | Product #003
Applicant: SANKYO USA CORP
Approved: Aug 4, 1997 | RLD: No | RS: No | Type: DISCN